FAERS Safety Report 10846875 (Version 2)
Quarter: 2015Q1

REPORT INFORMATION
  Report Type: Spontaneous
  Country: CN (occurrence: CN)
  Receive Date: 20150220
  Receipt Date: 20150313
  Transmission Date: 20150721
  Serious: Yes (Death)
  Sender: FDA-Public Use
  Company Number: CN-BAYER-2015-023199

PATIENT
  Age: 8 Year
  Sex: Male

DRUGS (17)
  1. GLUCOSE INJECTION [Concomitant]
     Dosage: 50 ML, QD
     Dates: start: 20150204, end: 20150210
  2. ADENOSINE TRIPHOSPHATE, DISODIUM SALT [Concomitant]
     Dosage: 20 MG, UNK
     Dates: start: 20150204, end: 20150210
  3. GANCICLOVIR. [Concomitant]
     Active Substance: GANCICLOVIR
     Dosage: 180 MG, EVERY TIME
     Dates: start: 20150207, end: 20150210
  4. BAYASPIRIN [Suspect]
     Active Substance: ASPIRIN
     Indication: HISTIOCYTOSIS HAEMATOPHAGIC
     Dosage: 400 MG, TID
     Dates: start: 20150203, end: 20150208
  5. BAYASPIRIN [Suspect]
     Active Substance: ASPIRIN
     Indication: HISTIOCYTOSIS HAEMATOPHAGIC
     Dosage: 50 MG, TID
     Dates: start: 20150208, end: 20150209
  6. DIPYRIDAMOLE. [Concomitant]
     Active Substance: DIPYRIDAMOLE
     Dosage: 50 MG, BID
     Dates: start: 20150202, end: 20150209
  7. GLUCOSE INJECTION [Concomitant]
     Dosage: 150 ML, Q12H
     Dates: start: 20150207, end: 20150210
  8. CHYMOTRYPSIN [Concomitant]
     Active Substance: CHYMOTRYPSIN
     Dosage: 4000 U, UNK
     Dates: start: 20150202, end: 20150210
  9. SODIUM CHLORIDE INJECTION [Concomitant]
     Active Substance: SODIUM CHLORIDE
     Dosage: 50 ML, UNK
     Dates: start: 20150204, end: 20150210
  10. SODIUM CHLORIDE INJECTION [Concomitant]
     Active Substance: SODIUM CHLORIDE
     Dosage: 100 UNK, 2 ML EVERY TIME
     Dates: start: 20150202, end: 20150210
  11. COENZYME A [Concomitant]
     Active Substance: COENZYME A
     Dosage: 100 U, UNK
     Dates: start: 20150204, end: 20150210
  12. BATILOL [Concomitant]
     Dosage: 50 MG, TID
     Dates: start: 20150208, end: 20150210
  13. DEXAMETHASONE SODIUM PHOSPHATE. [Concomitant]
     Active Substance: DEXAMETHASONE SODIUM PHOSPHATE
     Dosage: 5 MG, EVERY TIME
     Dates: start: 20150202, end: 20150210
  14. GLUTATHIONE [Concomitant]
     Active Substance: GLUTATHIONE
     Dosage: UNK
     Dates: start: 20150204, end: 20150210
  15. VITAMIN E [TOCOPHEROL] [Concomitant]
     Dosage: 400 MG, BID
     Dates: start: 20150203, end: 20150209
  16. GLUCOSE INJECTION [Concomitant]
     Dosage: 100 ML, QD
     Dates: start: 20150204, end: 20150210
  17. INDOMETACIN [Concomitant]
     Active Substance: INDOMETHACIN
     Dosage: 37.5 MG, EVERY TIME
     Dates: start: 20150207, end: 20150210

REACTIONS (4)
  - Gastrointestinal haemorrhage [Fatal]
  - Product use issue [None]
  - Epistaxis [Fatal]
  - Intra-abdominal haemorrhage [Fatal]

NARRATIVE: CASE EVENT DATE: 201502
